FAERS Safety Report 4341851-1 (Version None)
Quarter: 2004Q2

REPORT INFORMATION
  Report Type: 
  Country: None (occurrence: None)
  Receive Date: 20040415
  Receipt Date: 20040329
  Transmission Date: 20050107
  Serious: Yes (Other)
  Sender: FDA-Public Use
  Company Number: USA040363556

PATIENT
  Age: 78 Year
  Sex: Male

DRUGS (17)
  1. ZYPREXA [Suspect]
     Dosage: 7.5 MG
     Dates: start: 20030101, end: 20040401
  2. CARBAMAZEPINE [Concomitant]
  3. CITALOPRAM [Concomitant]
  4. ARICEPT [Concomitant]
  5. BUPROPION HCL [Concomitant]
  6. ALBUTEROL [Concomitant]
  7. DIGOXIN [Concomitant]
  8. AEROBID [Concomitant]
  9. FORADIL [Concomitant]
  10. HYDROCHLOROTHIAZIDE [Concomitant]
  11. PRILOSEC [Concomitant]
  12. METOPROLOL [Concomitant]
  13. ATROVENT [Concomitant]
  14. FLOMAX [Concomitant]
  15. SIMVASTATIN [Concomitant]
  16. AMBIEN [Concomitant]
  17. EPOGEN [Concomitant]

REACTIONS (1)
  - PULMONARY HYPERTENSION [None]
